FAERS Safety Report 9598009 (Version 1)
Quarter: 2013Q4

REPORT INFORMATION
  Report Type: Spontaneous
  Country: US (occurrence: US)
  Receive Date: 20131004
  Receipt Date: 20131004
  Transmission Date: 20140711
  Serious: No
  Sender: FDA-Public Use
  Company Number: US-AMGEN-USASP2013022103

PATIENT
  Age: 57 Year
  Sex: Male

DRUGS (9)
  1. ENBREL [Suspect]
     Indication: PRODUCT USED FOR UNKNOWN INDICATION
     Dosage: 50 MG, QWK
     Route: 058
  2. DULERA [Concomitant]
     Dosage: 200-5, MUG, UNK
  3. GLUCO + CHONDROITIN [Concomitant]
     Dosage: UNK
  4. VITAMIN D                          /00107901/ [Concomitant]
     Dosage: 2000 UNIT, UNK
  5. DIAZEPAM [Concomitant]
     Dosage: 5 MG, UNK
  6. ALBUTEROL                          /00139501/ [Concomitant]
     Dosage: 08 MG, UNK
  7. ACETYLSALICYLIC ACID W/OXYCODONE   /00953301/ [Concomitant]
     Dosage: UNK
  8. NORVASC [Concomitant]
     Dosage: 5 MG, UNK
  9. METOPROLOL [Concomitant]
     Dosage: 50 MG, UNK

REACTIONS (4)
  - Rash erythematous [Unknown]
  - Skin discolouration [Unknown]
  - Skin atrophy [Unknown]
  - Laceration [Unknown]
